FAERS Safety Report 11782720 (Version 1)
Quarter: 2015Q4

REPORT INFORMATION
  Report Type: Spontaneous
  Country: DE (occurrence: DE)
  Receive Date: 20151127
  Receipt Date: 20151127
  Transmission Date: 20160305
  Serious: Yes (Congenital Anomaly, Other)
  Sender: FDA-Public Use
  Company Number: GXKR2015DE005173

PATIENT

DRUGS (6)
  1. BISOPROLOL [Suspect]
     Active Substance: BISOPROLOL
     Indication: HYPERTENSION
     Dosage: 10 [MG/D ] (GW0-40.5)
     Route: 064
     Dates: start: 20140511, end: 20150220
  2. CETIRIZINE [Suspect]
     Active Substance: CETIRIZINE HYDROCHLORIDE
     Indication: HYPERSENSITIVITY
     Dosage: 10 [MG/D ] (GW0-20)
     Route: 064
  3. NOVAMINSULFON [Concomitant]
     Active Substance: METAMIZOLE
     Indication: FIBROMYALGIA
     Route: 064
     Dates: start: 20140511, end: 20140617
  4. FOLSAEURE [Concomitant]
     Active Substance: FOLIC ACID
     Indication: PROPHYLAXIS OF NEURAL TUBE DEFECT
     Dosage: 0.8 [MG/D ]
     Route: 064
     Dates: start: 20140612, end: 20150220
  5. TRAUMEEL                           /06048201/ [Concomitant]
     Indication: PAIN
     Route: 064
  6. VALDOXAN [Concomitant]
     Active Substance: AGOMELATINE
     Indication: DEPRESSION
     Dosage: 50 [MG/D ]
     Route: 064
     Dates: start: 20140511, end: 20140612

REACTIONS (4)
  - Hydroureter [Not Recovered/Not Resolved]
  - Reflux nephropathy [Not Recovered/Not Resolved]
  - Large for dates baby [Unknown]
  - Congenital hydronephrosis [Not Recovered/Not Resolved]

NARRATIVE: CASE EVENT DATE: 20150220
